FAERS Safety Report 10210226 (Version 5)
Quarter: 2015Q1

REPORT INFORMATION
  Report Type: Spontaneous
  Country: IT (occurrence: IT)
  Receive Date: 20140602
  Receipt Date: 20150225
  Transmission Date: 20150720
  Serious: Yes (Death, Other)
  Sender: FDA-Public Use
  Company Number: IT-ALEXION PHARMACEUTICALS INC.-A201402087

PATIENT

DRUGS (9)
  1. SOLIRIS [Suspect]
     Active Substance: ECULIZUMAB
     Dosage: 1200 MG, Q3W
     Route: 042
     Dates: start: 20130131, end: 20130423
  2. SOLIRIS [Suspect]
     Active Substance: ECULIZUMAB
     Dosage: `1200 MG, QMONTH
     Route: 042
     Dates: start: 20130423, end: 20130514
  3. REPAGLINIDE. [Concomitant]
     Active Substance: REPAGLINIDE
     Indication: TYPE 2 DIABETES MELLITUS
     Route: 048
  4. SOLIRIS [Suspect]
     Active Substance: ECULIZUMAB
     Indication: MICROSCOPIC POLYANGIITIS
     Dosage: 600 MG, QW
     Route: 042
     Dates: start: 20121012, end: 20121019
  5. SOLIRIS [Suspect]
     Active Substance: ECULIZUMAB
     Dosage: 1200 MG, Q2W
     Route: 042
     Dates: start: 20121109, end: 20130131
  6. SOLIRIS [Suspect]
     Active Substance: ECULIZUMAB
     Indication: OFF LABEL USE
     Dosage: 900 MG, UNK
     Route: 042
     Dates: start: 20121026, end: 20121103
  7. ANTIBIOTICS [Concomitant]
     Active Substance: UNSPECIFIED INGREDIENT
     Indication: ANTIBIOTIC PROPHYLAXIS
     Dosage: UNK
     Route: 065
     Dates: start: 20121005
  8. VILDAGLIPTIN [Concomitant]
     Active Substance: VILDAGLIPTIN
     Indication: TYPE 2 DIABETES MELLITUS
     Dosage: UNK
     Route: 048
  9. SOLIRIS [Suspect]
     Active Substance: ECULIZUMAB
     Dosage: 1200 MG, Q2W
     Route: 042
     Dates: start: 20130514, end: 20140402

REACTIONS (2)
  - Diffuse large B-cell lymphoma [Fatal]
  - Off label use [Unknown]

NARRATIVE: CASE EVENT DATE: 20121012
